FAERS Safety Report 7994279-7 (Version None)
Quarter: 2011Q4

REPORT INFORMATION
  Report Type: 
  Country: None (occurrence: None)
  Receive Date: 20111220
  Receipt Date: 20111212
  Transmission Date: 20120403
  Serious: Yes (Other)
  Sender: FDA-Public Use
  Company Number: FR-JNJFOC-20111205779

PATIENT
  Sex: Male
  Weight: 70 kg

DRUGS (2)
  1. XARELTO [Suspect]
     Indication: OSTEOARTHRITIS
     Route: 048
     Dates: start: 20110118
  2. LOVENOX [Concomitant]
     Dates: start: 20110117, end: 20110117

REACTIONS (2)
  - HAEMATURIA [None]
  - URINARY RETENTION [None]
